FAERS Safety Report 17703289 (Version 1)
Quarter: 2020Q2

REPORT INFORMATION
  Report Type: Spontaneous
  Country: IT (occurrence: IT)
  Receive Date: 20200423
  Receipt Date: 20200423
  Transmission Date: 20200714
  Serious: Yes (Other)
  Sender: FDA-Public Use
  Company Number: IT-BAXTER-2020BAX008142

PATIENT
  Age: 6 Year
  Sex: Female

DRUGS (10)
  1. CARBOPLATIN. [Suspect]
     Active Substance: CARBOPLATIN
     Indication: NEUROBLASTOMA
     Dosage: SIOPEN NB-HR-01 PROTOCOL; 10 WEEKS OF INDUCTION CHEMOTHERAPY (COJEC SCHEME)
     Route: 065
     Dates: start: 201507
  2. IRINOTECAN [Suspect]
     Active Substance: IRINOTECAN
     Indication: NEUROBLASTOMA
     Dosage: RESCUE THERAPY; IRINOTECAN FOR FIVE CONSECUTIVE DAYS EVERY 3 WEEKS
     Route: 050
  3. VINCRISTINE [Suspect]
     Active Substance: VINCRISTINE
     Indication: NEUROBLASTOMA
     Dosage: SIOPEN NB-HR-01 PROTOCOL; 10 WEEKS OF INDUCTION CHEMOTHERAPY (COJEC SCHEME)
     Route: 065
     Dates: start: 201507
  4. TEMOZOLAMIDE [Suspect]
     Active Substance: TEMOZOLOMIDE
     Indication: NEUROBLASTOMA
     Dosage: RESCUE THERAPY; TEMOZOLOMIDE FOR FIVE CONSECUTIVE DAYS EVERY 3 WEEKS
     Route: 050
  5. MELPHALAN. [Suspect]
     Active Substance: MELPHALAN
     Indication: NEUROBLASTOMA
     Dosage: SIOPEN NB-HR-01 PROTOCOL
     Route: 065
     Dates: start: 2016
  6. CISPLATIN. [Suspect]
     Active Substance: CISPLATIN
     Indication: NEUROBLASTOMA
     Dosage: SIOPEN NB-HR-01 PROTOCOL; 10 WEEKS OF INDUCTION CHEMOTHERAPY (COJEC SCHEME)
     Route: 065
     Dates: start: 201507
  7. ENDOXAN BAXTER [Suspect]
     Active Substance: CYCLOPHOSPHAMIDE
     Indication: NEUROBLASTOMA
     Dosage: SIOPEN NB-HR-01 PROTOCOL; 10 WEEKS OF INDUCTION CHEMOTHERAPY (COJEC SCHEME)
     Route: 065
     Dates: start: 201507
  8. DINUTUXIMAB [Suspect]
     Active Substance: DINUTUXIMAB
     Indication: NEUROBLASTOMA
     Dosage: SIOPEN NB-HR-01 PROTOCOL, SIX COURSES OF ANTI-GD2 ANTIBODY
     Route: 065
     Dates: start: 2016
  9. ETOPOSIDE. [Suspect]
     Active Substance: ETOPOSIDE
     Indication: NEUROBLASTOMA
     Dosage: SIOPEN NB-HR-01 PROTOCOL; 10 WEEKS OF INDUCTION CHEMOTHERAPY (COJEC SCHEME)
     Route: 065
     Dates: start: 201507
  10. BUSULFAN. [Suspect]
     Active Substance: BUSULFAN
     Indication: NEUROBLASTOMA
     Dosage: SIOPEN NB-HR-01 PROTOCOL
     Route: 065
     Dates: start: 2016

REACTIONS (4)
  - Device related infection [Unknown]
  - Bone marrow toxicity [Unknown]
  - Drug ineffective [Unknown]
  - Fungaemia [Unknown]

NARRATIVE: CASE EVENT DATE: 201603
